FAERS Safety Report 7238814 (Version 16)
Quarter: 2013Q1

REPORT INFORMATION
  Report Type: Spontaneous
  Country: US (occurrence: US)
  Receive Date: 20100107
  Receipt Date: 20130215
  Transmission Date: 20140127
  Serious: Yes (Hospitalization)
  Sender: FDA-Public Use
  Company Number: US-BIOGENIDEC-2010BI000133

PATIENT
  Age: 51 Year
  Sex: Male

DRUGS (4)
  1. AVONEX [Suspect]
     Indication: MULTIPLE SCLEROSIS
     Route: 030
  2. AVONEX [Suspect]
     Indication: MULTIPLE SCLEROSIS
     Route: 030
     Dates: start: 20010329
  3. AVONEX [Suspect]
     Indication: MULTIPLE SCLEROSIS
     Route: 030
     Dates: start: 200411
  4. AVONEX [Suspect]
     Indication: MULTIPLE SCLEROSIS
     Route: 030

REACTIONS (7)
  - Squamous cell carcinoma of the oral cavity [Recovered/Resolved]
  - Neoplasm malignant [Recovered/Resolved]
  - Oesophageal carcinoma [Recovered/Resolved]
  - Brain operation [Recovered/Resolved]
  - Injection site erythema [Not Recovered/Not Resolved]
  - Pain [Unknown]
  - Multiple sclerosis relapse [Recovered/Resolved]
